FAERS Safety Report 6749228-6 (Version None)
Quarter: 2010Q2

REPORT INFORMATION
  Report Type: 
  Country: None (occurrence: None)
  Receive Date: 20100601
  Receipt Date: 20100525
  Transmission Date: 20101027
  Serious: Yes (Hospitalization)
  Sender: FDA-Public Use
  Company Number: JP-BAYER-201010125BYL

PATIENT
  Age: 77 Year
  Sex: Male
  Weight: 60 kg

DRUGS (9)
  1. NEXAVAR [Suspect]
     Indication: HEPATIC NEOPLASM MALIGNANT
     Dosage: TOTAL DAILY DOSE: 800 MG  UNIT DOSE: 200 MG
     Route: 048
     Dates: start: 20091117, end: 20091122
  2. LIVACT [Concomitant]
     Indication: HEPATIC NEOPLASM MALIGNANT
     Dosage: UNIT DOSE: 4.15 G
     Route: 048
     Dates: start: 20070101
  3. URSO 250 [Concomitant]
     Indication: HEPATIC NEOPLASM MALIGNANT
     Dosage: UNIT DOSE: 100 MG
     Route: 048
     Dates: start: 20070101
  4. MUCOSTA [Concomitant]
     Indication: GASTRITIS
     Dosage: UNIT DOSE: 100 MG
     Route: 048
  5. OLMESARTAN MEDOXOMIL [Concomitant]
     Indication: HYPERTENSION
     Dosage: UNIT DOSE: 20 MG
     Route: 048
  6. FLUVASTATIN [Concomitant]
     Indication: HYPERLIPIDAEMIA
     Dosage: UNIT DOSE: 20 MG
     Route: 048
  7. TAKEPRON [Concomitant]
     Indication: DUODENAL ULCER
     Dosage: UNIT DOSE: 15 MG
     Route: 048
  8. DEPAS [Concomitant]
     Indication: ANXIETY
     Dosage: UNIT DOSE: 0.5 MG
     Route: 048
  9. MEXITIL [Concomitant]
     Indication: ANXIETY
     Dosage: UNIT DOSE: 100 MG
     Route: 048

REACTIONS (2)
  - HEPATIC ENCEPHALOPATHY [None]
  - PALMAR-PLANTAR ERYTHRODYSAESTHESIA SYNDROME [None]
